FAERS Safety Report 6401438-3 (Version None)
Quarter: 2009Q4

REPORT INFORMATION
  Report Type: 
  Country: None (occurrence: None)
  Receive Date: 20091015
  Receipt Date: 20091012
  Transmission Date: 20100525
  Serious: Yes (Life-Threatening, Hospitalization, Other)
  Sender: FDA-Public Use
  Company Number: DE-BRISTOL-MYERS SQUIBB COMPANY-14292031

PATIENT
  Age: 60 Year
  Sex: Male
  Weight: 74 kg

DRUGS (5)
  1. BARACLUDE [Suspect]
     Indication: HEPATITIS B
     Route: 048
     Dates: start: 20080729, end: 20080806
  2. PANTOPRAZOLE SODIUM [Concomitant]
  3. PROPRANOLOL HYDROCHLORIDE [Concomitant]
  4. VITAMIN K TAB [Concomitant]
  5. MEROPENEM [Concomitant]

REACTIONS (4)
  - HEPATIC STEATOSIS [None]
  - LACTIC ACIDOSIS [None]
  - PNEUMONIA [None]
  - RENAL FAILURE [None]
